FAERS Safety Report 9380353 (Version 1)
Quarter: 2013Q3

REPORT INFORMATION
  Report Type: Spontaneous
  Country: CN (occurrence: CN)
  Receive Date: 20130702
  Receipt Date: 20130702
  Transmission Date: 20140515
  Serious: Yes (Hospitalization, Other)
  Sender: FDA-Public Use
  Company Number: CN-GLAXOSMITHKLINE-B0904452A

PATIENT
  Sex: Male
  Weight: 63 kg

DRUGS (1)
  1. LAMIVUDINE-HBV [Suspect]
     Indication: CHRONIC HEPATITIS
     Dosage: 1TAB PER DAY
     Route: 048
     Dates: start: 20120409, end: 20120412

REACTIONS (2)
  - Musculoskeletal pain [Recovering/Resolving]
  - Myalgia [Recovering/Resolving]
